FAERS Safety Report 6827653-2 (Version None)
Quarter: 2010Q3

REPORT INFORMATION
  Report Type: 
  Country: None (occurrence: None)
  Receive Date: 20100709
  Receipt Date: 20070122
  Transmission Date: 20110219
  Serious: No
  Sender: FDA-Public Use
  Company Number: US-PFIZER INC-2007006889

PATIENT
  Sex: Female
  Weight: 86.18 kg

DRUGS (4)
  1. CHANTIX [Suspect]
     Indication: SMOKING CESSATION THERAPY
     Dates: start: 20070114
  2. LEXAPRO [Concomitant]
  3. MEDROXYPROGESTERONE [Concomitant]
  4. PREMARIN [Concomitant]

REACTIONS (6)
  - DEPRESSED MOOD [None]
  - FEELING ABNORMAL [None]
  - HEADACHE [None]
  - NAUSEA [None]
  - SLEEP DISORDER [None]
  - SOMNOLENCE [None]
